FAERS Safety Report 10227469 (Version 4)
Quarter: 2015Q1

REPORT INFORMATION
  Report Type: Report from Study
  Country: CA (occurrence: CA)
  Receive Date: 20140610
  Receipt Date: 20150120
  Transmission Date: 20150720
  Serious: Yes (Hospitalization)
  Sender: FDA-Public Use
  Company Number: PHHY2014CA070215

PATIENT
  Sex: Female

DRUGS (1)
  1. SIGNIFOR [Suspect]
     Active Substance: PASIREOTIDE
     Indication: PITUITARY-DEPENDENT CUSHING^S SYNDROME
     Dosage: 150 UG, BID
     Route: 058
     Dates: start: 200710

REACTIONS (11)
  - Contusion [Unknown]
  - Pericarditis [Unknown]
  - Initial insomnia [Unknown]
  - Anger [Unknown]
  - Psychiatric symptom [Unknown]
  - Chest pain [Unknown]
  - Irritability [Unknown]
  - Impaired healing [Unknown]
  - Mood swings [Unknown]
  - Hyperglycaemia [Unknown]
  - Memory impairment [Unknown]
